FAERS Safety Report 12981561 (Version 1)
Quarter: 2016Q4

REPORT INFORMATION
  Report Type: Spontaneous
  Country: US (occurrence: US)
  Receive Date: 20161129
  Receipt Date: 20161129
  Transmission Date: 20170207
  Serious: Yes (Hospitalization)
  Sender: FDA-Public Use
  Company Number: US-ASTRAZENECA-2016SF24589

PATIENT
  Sex: Female

DRUGS (6)
  1. ALBUTEROL. [Concomitant]
     Active Substance: ALBUTEROL
  2. SYMBICORT [Suspect]
     Active Substance: BUDESONIDE\FORMOTEROL FUMARATE DIHYDRATE
     Indication: ASTHMA
     Dosage: 160/4.5MCG, 2 PUFFS, TWICE DAILY
     Route: 055
     Dates: start: 20161006, end: 20161116
  3. ANTIDEPRESSANT MEDICATION [Concomitant]
     Active Substance: UNSPECIFIED INGREDIENT
  4. SYMBICORT [Suspect]
     Active Substance: BUDESONIDE\FORMOTEROL FUMARATE DIHYDRATE
     Indication: ASTHMA
     Dosage: 80/4.5MCG  2 PUFFS TWICE DAILY
     Route: 055
     Dates: start: 201607, end: 20161006
  5. BUDESONIDE. [Concomitant]
     Active Substance: BUDESONIDE
     Route: 055
     Dates: start: 20161116
  6. OTHER ASTHMA MEDICATIONS [Concomitant]

REACTIONS (1)
  - Vocal cord paralysis [Unknown]

NARRATIVE: CASE EVENT DATE: 201608
